FAERS Safety Report 23099793 (Version 1)
Quarter: 2023Q4

REPORT INFORMATION
  Report Type: Spontaneous
  Country: US (occurrence: US)
  Receive Date: 20231024
  Receipt Date: 20231024
  Transmission Date: 20240110
  Serious: Yes (Other)
  Sender: FDA-Public Use
  Company Number: US-HIKMA PHARMACEUTICALS USA INC.-US-H14001-23-66146

PATIENT

DRUGS (1)
  1. METHADONE [Suspect]
     Active Substance: METHADONE HYDROCHLORIDE
     Indication: Pain
     Dosage: UNK UNK, TID
     Route: 048

REACTIONS (6)
  - Depressed level of consciousness [Unknown]
  - Headache [Unknown]
  - Mental impairment [Unknown]
  - Illness [Unknown]
  - Drug dependence [Unknown]
  - Therapeutic product effect decreased [Unknown]
